FAERS Safety Report 24587582 (Version 1)
Quarter: 2024Q4

REPORT INFORMATION
  Report Type: Other
  Country: IT (occurrence: IT)
  Receive Date: 20241107
  Receipt Date: 20241107
  Transmission Date: 20250114
  Serious: Yes (Other)
  Sender: ANI
  Company Number: IT-ANIPHARMA-012708

PATIENT
  Age: 27 Year
  Sex: Male

DRUGS (1)
  1. IBUPROFEN [Suspect]
     Active Substance: IBUPROFEN
     Indication: Back pain
     Dosage: SLOW-RELEASE (TOTAL DOSE 2400MG)
     Route: 048

REACTIONS (2)
  - Neurotoxicity [Recovering/Resolving]
  - Toxicity to various agents [Recovering/Resolving]
